FAERS Safety Report 9424779 (Version 1)
Quarter: 2013Q3

REPORT INFORMATION
  Report Type: Spontaneous
  Country: US (occurrence: US)
  Receive Date: 20130729
  Receipt Date: 20130729
  Transmission Date: 20140515
  Serious: Yes (Other)
  Sender: FDA-Public Use
  Company Number: US-PFIZER INC-2013219670

PATIENT
  Age: 72 Year
  Sex: Male
  Weight: 92.97 kg

DRUGS (3)
  1. LIPITOR [Suspect]
     Indication: BLOOD CHOLESTEROL ABNORMAL
     Dosage: 10 MG, DAILY
  2. OXYCODONE [Concomitant]
     Indication: RESTLESS LEGS SYNDROME
     Dosage: ^5/325MG^
  3. COUMADIN [Concomitant]
     Dosage: UNK

REACTIONS (1)
  - Macular degeneration [Unknown]
